FAERS Safety Report 5761949-0 (Version None)
Quarter: 2008Q2

REPORT INFORMATION
  Report Type: 
  Country: None (occurrence: None)
  Receive Date: 20080603
  Receipt Date: 20080529
  Transmission Date: 20081010
  Serious: Yes (Hospitalization)
  Sender: FDA-Public Use
  Company Number: 2008SP008805

PATIENT
  Age: 42 Year
  Sex: Female

DRUGS (8)
  1. TEMODAR [Suspect]
     Indication: DRUG USE FOR UNKNOWN INDICATION
     Dosage: 60 MG; PO
     Route: 048
     Dates: start: 20080211, end: 20080215
  2. DECADRON [Concomitant]
  3. PROTONIX [Concomitant]
  4. DILAUDID [Concomitant]
  5. DEPAKOTE [Concomitant]
  6. PREDNISONE TAB [Concomitant]
  7. LASIX [Concomitant]
  8. POTASSIUM CHLORIDE [Concomitant]

REACTIONS (5)
  - ACUTE RESPIRATORY DISTRESS SYNDROME [None]
  - NEUROPATHY PERIPHERAL [None]
  - OEDEMA PERIPHERAL [None]
  - SKIN REACTION [None]
  - VASCULITIS [None]
